FAERS Safety Report 8352004-4 (Version None)
Quarter: 2012Q2

REPORT INFORMATION
  Report Type: 
  Country: None (occurrence: None)
  Receive Date: 20120509
  Receipt Date: 20120301
  Transmission Date: 20120825
  Serious: Yes (Hospitalization)
  Sender: FDA-Public Use
  Company Number: 2012000045

PATIENT
  Age: 64 Year
  Sex: Male

DRUGS (7)
  1. SIMVASTATIN [Suspect]
     Indication: PRODUCT USED FOR UNKNOWN INDICATION
     Dosage: 40 MG, QD, ORAL
     Route: 048
     Dates: start: 20060101, end: 20120108
  2. ASPIRIN [Concomitant]
  3. TENORMIN [Concomitant]
  4. LEVOTHYROXINE SODIUM [Concomitant]
  5. NEXIUM [Concomitant]
  6. ACEON [Suspect]
     Indication: HYPERTENSION
     Dosage: 10 MG, QD, ORAL
     Route: 048
     Dates: end: 20120108
  7. TRILEPTAL [Suspect]
     Indication: PRODUCT USED FOR UNKNOWN INDICATION
     Dosage: 300 MG, BID, ORAL
     Route: 048

REACTIONS (3)
  - RHABDOMYOLYSIS [None]
  - ANURIA [None]
  - HYPONATRAEMIA [None]
